FAERS Safety Report 7081153-6 (Version None)
Quarter: 2010Q4

REPORT INFORMATION
  Report Type: 
  Country: None (occurrence: None)
  Receive Date: 20101103
  Receipt Date: 20101025
  Transmission Date: 20110411
  Serious: Yes (Other)
  Sender: FDA-Public Use
  Company Number: B0681130A

PATIENT
  Sex: Female

DRUGS (2)
  1. MODACIN [Suspect]
     Indication: INFECTION
     Dosage: 2G PER DAY
     Route: 042
     Dates: start: 20101021, end: 20101021
  2. FLOMOX [Concomitant]
     Indication: INFECTION
     Dosage: 300MG PER DAY
     Route: 048

REACTIONS (1)
  - CYSTITIS HAEMORRHAGIC [None]
